FAERS Safety Report 9847470 (Version 1)
Quarter: 2014Q1

REPORT INFORMATION
  Report Type: Report from Study
  Country: CL (occurrence: CL)
  Receive Date: 20140127
  Receipt Date: 20140127
  Transmission Date: 20141002
  Serious: Yes (Other)
  Sender: FDA-Public Use
  Company Number: CL-ROCHE-1340223

PATIENT
  Age: 71 Year
  Sex: 0
  Weight: 84 kg

DRUGS (2)
  1. XELODA [Suspect]
     Indication: COLON CANCER
     Dosage: 14-DAY-CYCLE?LAST DOSE RECEIVED ON 15/JAN/2014
     Route: 048
     Dates: start: 20131114, end: 20140120
  2. HYDROCHLOROTHIAZIDE [Concomitant]
     Indication: HYPERTENSION
     Route: 048
     Dates: start: 2000

REACTIONS (1)
  - Disease progression [Unknown]
